FAERS Safety Report 6476688-0 (Version None)
Quarter: 2009Q4

REPORT INFORMATION
  Report Type: 
  Country: None (occurrence: None)
  Receive Date: 20091207
  Receipt Date: 20091119
  Transmission Date: 20100525
  Serious: Yes (Death, Other)
  Sender: FDA-Public Use
  Company Number: JP-MILLENNIUM PHARMACEUTICALS, INC.-2008-04686

PATIENT

DRUGS (14)
  1. VELCADE [Suspect]
     Indication: MULTIPLE MYELOMA
     Dosage: 1.7 MG, CYCLIC
     Route: 042
     Dates: end: 20071107
  2. VELCADE [Suspect]
     Dosage: 1.7 MG, CYCLIC
     Route: 042
     Dates: start: 20081213, end: 20090120
  3. CISPLATIN [Suspect]
     Indication: DRUG USE FOR UNKNOWN INDICATION
     Dosage: 13 MG, UNK
     Route: 042
     Dates: start: 20080527, end: 20080530
  4. CYCLOPHOSPHAMIDE [Suspect]
     Indication: DRUG USE FOR UNKNOWN INDICATION
     Dosage: 520 MG, UNK
     Route: 042
     Dates: start: 20080527, end: 20080530
  5. ETOPOSIDE [Suspect]
     Indication: DRUG USE FOR UNKNOWN INDICATION
     Dosage: 50 MG, UNK
     Route: 042
     Dates: start: 20080527, end: 20080530
  6. DEXAMETHASONE [Concomitant]
     Indication: MULTIPLE MYELOMA
     Dosage: 20 MG, UNK
     Route: 042
     Dates: start: 20070420
  7. BACTRAMIN [Concomitant]
     Indication: PROPHYLAXIS
     Dosage: 480 MG, QD
     Route: 048
     Dates: start: 20030612
  8. BACTRAMIN [Concomitant]
     Dosage: 1 DF, QD
     Route: 048
     Dates: start: 20080528, end: 20090313
  9. ALLOPURINOL [Concomitant]
     Indication: PROPHYLAXIS
     Dosage: 200 MG, QD
     Route: 048
     Dates: start: 20080516, end: 20080708
  10. WARFARIN SODIUM [Concomitant]
     Indication: PROPHYLAXIS
     Dosage: 3 MG, QD
     Route: 048
     Dates: start: 20080516, end: 20080707
  11. LASIX [Concomitant]
     Dosage: 20 MG, QD
     Route: 048
     Dates: start: 20080520, end: 20080605
  12. MYCOSYST [Concomitant]
     Indication: PROPHYLAXIS
     Dosage: 100 MG, QD
     Route: 048
     Dates: start: 20080528, end: 20090313
  13. DEXART [Concomitant]
     Dosage: 40 MG, QD
     Route: 042
     Dates: start: 20080527, end: 20080530
  14. NEUTROGIN [Concomitant]
     Dosage: 100 UG, QD
     Route: 065
     Dates: start: 20080602, end: 20080611

REACTIONS (2)
  - DISEASE PROGRESSION [None]
  - FEBRILE NEUTROPENIA [None]
